FAERS Safety Report 4867580-3 (Version None)
Quarter: 2005Q4

REPORT INFORMATION
  Report Type: 
  Country: None (occurrence: None)
  Receive Date: 20051223
  Receipt Date: 20051223
  Transmission Date: 20060501
  Serious: Yes (Other)
  Sender: FDA-Public Use
  Company Number: None

PATIENT
  Sex: Female
  Weight: 55.3388 kg

DRUGS (7)
  1. ACTONEL [Suspect]
     Indication: OSTEOPOROSIS
     Dosage: 35 MG PO Q WEEK
     Route: 048
     Dates: start: 20041201
  2. ACTONEL [Suspect]
     Indication: OSTEOPOROSIS
     Dosage: 35 MG PO Q WEEK
     Route: 048
     Dates: start: 20050401
  3. CALCIUM GLUCONATE [Concomitant]
  4. ALPRAZOLAM [Concomitant]
  5. CLONAZEPAM [Concomitant]
  6. LEXAPRO [Concomitant]
  7. MULTI-VITAMIN [Concomitant]

REACTIONS (2)
  - FOOD ALLERGY [None]
  - URTICARIA [None]
